FAERS Safety Report 4664010-1 (Version None)
Quarter: 2005Q2

REPORT INFORMATION
  Report Type: 
  Country: None (occurrence: None)
  Receive Date: 20050516
  Receipt Date: 20050516
  Transmission Date: 20051028
  Serious: Yes (Hospitalization, Disabling)
  Sender: FDA-Public Use
  Company Number: None

PATIENT
  Age: 82 Year
  Sex: Male
  Weight: 87.9978 kg

DRUGS (1)
  1. OLANZAPINE [Suspect]
     Indication: PARANOIA
     Dosage: 2.5 MG DAILY
     Dates: start: 20011206, end: 20050305

REACTIONS (1)
  - CEREBROVASCULAR ACCIDENT [None]
